FAERS Safety Report 18254392 (Version 1)
Quarter: 2020Q3

REPORT INFORMATION
  Report Type: Spontaneous
  Country: FR (occurrence: FR)
  Receive Date: 20200910
  Receipt Date: 20200910
  Transmission Date: 20201103
  Serious: Yes (Other)
  Sender: FDA-Public Use
  Company Number: FR-MYLANLABS-2020M1076704

PATIENT
  Age: 60 Year
  Sex: Male
  Weight: 93 kg

DRUGS (12)
  1. METHYLPREDNISOLONE MYLAN [Suspect]
     Active Substance: METHYLPREDNISOLONE
     Indication: CHEMOTHERAPY SIDE EFFECT PROPHYLAXIS
     Dosage: 60 MILLIGRAM, CYCLE
     Route: 041
     Dates: start: 20200519
  2. LANSOPRAZOLE MYLAN [Concomitant]
     Active Substance: LANSOPRAZOLE
     Dosage: UNK
  3. EMEND [Suspect]
     Active Substance: APREPITANT
     Indication: CHEMOTHERAPY SIDE EFFECT PROPHYLAXIS
     Dosage: 125 MILLIGRAM, CYCLE
     Route: 048
     Dates: start: 20200519
  4. CETIRIZINE [Concomitant]
     Active Substance: CETIRIZINE HYDROCHLORIDE
     Dosage: UNK
  5. INNOHEP [Concomitant]
     Active Substance: TINZAPARIN SODIUM
     Dosage: UNK
  6. CARBOPLATINE [Suspect]
     Active Substance: CARBOPLATIN
     Indication: SMALL CELL LUNG CANCER
     Dosage: 950 MILLIGRAM, CYCLE
     Route: 041
     Dates: start: 20200519
  7. ONDANSETRON ACCORD [Suspect]
     Active Substance: ONDANSETRON
     Indication: CHEMOTHERAPY SIDE EFFECT PROPHYLAXIS
     Dosage: 16 MILLIGRAM, CYCLE
     Route: 041
     Dates: start: 20200519
  8. TECENTRIQ [Suspect]
     Active Substance: ATEZOLIZUMAB
     Indication: SMALL CELL LUNG CANCER
     Dosage: 1200 MILLIGRAM, CYCLE
     Route: 041
     Dates: start: 20200519
  9. ULTIBRO BREEZHALER [Concomitant]
     Active Substance: GLYCOPYRRONIUM\INDACATEROL
     Dosage: UNK
  10. CORTANCYL [Concomitant]
     Active Substance: PREDNISONE
     Dosage: UNK
  11. ETOPOSIDE. [Suspect]
     Active Substance: ETOPOSIDE
     Indication: SMALL CELL LUNG CANCER
     Dosage: 630 MILLIGRAM, CYCLE
     Route: 041
     Dates: start: 20200519
  12. EMEND [Suspect]
     Active Substance: APREPITANT
     Indication: CHEMOTHERAPY SIDE EFFECT PROPHYLAXIS
     Dosage: 160 MILLIGRAM, CYCLE
     Route: 048
     Dates: start: 20200519

REACTIONS (1)
  - Neuropathy peripheral [Not Recovered/Not Resolved]

NARRATIVE: CASE EVENT DATE: 20200519
